FAERS Safety Report 17159001 (Version 2)
Quarter: 2019Q4

REPORT INFORMATION
  Report Type: Report from Study
  Country: AR (occurrence: AR)
  Receive Date: 20191216
  Receipt Date: 20191230
  Transmission Date: 20200122
  Serious: Yes (Hospitalization, Other)
  Sender: FDA-Public Use
  Company Number: AR-BAYER-2019-199066

PATIENT
  Age: 64 Year
  Sex: Male

DRUGS (2)
  1. NEXAVAR [Suspect]
     Active Substance: SORAFENIB
     Indication: HEPATOCELLULAR CARCINOMA
     Dosage: UNK
     Dates: start: 20180715
  2. NEXAVAR [Suspect]
     Active Substance: SORAFENIB
     Indication: HEPATOCELLULAR CARCINOMA
     Dosage: UNK
     Dates: start: 20190311, end: 20190908

REACTIONS (5)
  - Hepatocellular carcinoma [None]
  - Abdominal distension [Not Recovered/Not Resolved]
  - Unevaluable event [Not Recovered/Not Resolved]
  - General physical health deterioration [None]
  - Product availability issue [None]

NARRATIVE: CASE EVENT DATE: 201910
